FAERS Safety Report 5499556-X (Version None)
Quarter: 2007Q4

REPORT INFORMATION
  Report Type: 
  Country: None (occurrence: None)
  Receive Date: 20071026
  Receipt Date: 20071016
  Transmission Date: 20080405
  Serious: Yes (Other)
  Sender: FDA-Public Use
  Company Number: GB-WYE-G00481107

PATIENT
  Sex: Female

DRUGS (2)
  1. EFFEXOR [Suspect]
     Route: 048
     Dates: start: 20070326, end: 20070101
  2. EFFEXOR [Suspect]
     Route: 048
     Dates: start: 20070101

REACTIONS (3)
  - PSYCHIATRIC SYMPTOM [None]
  - STRESS [None]
  - SUICIDAL IDEATION [None]
